FAERS Safety Report 5919789-5 (Version None)
Quarter: 2008Q4

REPORT INFORMATION
  Report Type: 
  Country: None (occurrence: None)
  Receive Date: 20081015
  Receipt Date: 20081003
  Transmission Date: 20090506
  Serious: Yes (Hospitalization)
  Sender: FDA-Public Use
  Company Number: JP-PFIZER INC-2008084082

PATIENT
  Age: 70 Year
  Sex: Male

DRUGS (4)
  1. AZULFIDINE [Suspect]
     Indication: RHEUMATOID ARTHRITIS
     Route: 048
     Dates: start: 20051213, end: 20060110
  2. MOBIC [Concomitant]
     Route: 048
     Dates: start: 20051213
  3. MUCOSTA [Concomitant]
     Route: 048
     Dates: start: 20051213
  4. PREDNISOLONE [Concomitant]
     Route: 048
     Dates: start: 20051213

REACTIONS (2)
  - AGRANULOCYTOSIS [None]
  - PNEUMONIA [None]
